FAERS Safety Report 6543090-2 (Version None)
Quarter: 2010Q1

REPORT INFORMATION
  Report Type: 
  Country: None (occurrence: None)
  Receive Date: 20100120
  Receipt Date: 20100108
  Transmission Date: 20100710
  Serious: Yes (Hospitalization, Other)
  Sender: FDA-Public Use
  Company Number: PHHY2009GB50041

PATIENT
  Sex: Male

DRUGS (4)
  1. CLOZARIL [Suspect]
     Indication: SCHIZOPHRENIA
     Dosage: 500 MG/ DAY
     Route: 048
     Dates: start: 20090615
  2. CLOZARIL [Suspect]
     Dosage: UNK
  3. DEPAKOTE [Concomitant]
     Indication: MOOD ALTERED
     Dosage: 750 MG / DAY
     Route: 048
  4. CITALOPRAM HYDROBROMIDE [Concomitant]
     Indication: DEPRESSION
     Dosage: 20 MG / DAY
     Route: 048

REACTIONS (5)
  - ANXIETY [None]
  - CONVULSION [None]
  - DRUG ABUSE [None]
  - INCORRECT DOSE ADMINISTERED [None]
  - MUSCLE TWITCHING [None]
